FAERS Safety Report 8978416 (Version 3)
Quarter: 2013Q1

REPORT INFORMATION
  Report Type: Spontaneous
  Country: JP (occurrence: JP)
  Receive Date: 20121221
  Receipt Date: 20130125
  Transmission Date: 20140127
  Serious: Yes (Other)
  Sender: FDA-Public Use
  Company Number: JP-PFIZER INC-2012319053

PATIENT
  Sex: Female

DRUGS (1)
  1. DALACIN [Suspect]
     Dosage: UNK
     Route: 048

REACTIONS (1)
  - Oesophageal ulcer [Unknown]
